FAERS Safety Report 10644435 (Version 1)
Quarter: 2014Q4

REPORT INFORMATION
  Report Type: Spontaneous
  Country: PL (occurrence: PL)
  Receive Date: 20141210
  Receipt Date: 20141210
  Transmission Date: 20150529
  Serious: Yes (Other)
  Sender: FDA-Public Use
  Company Number: PL-BAUSCH-BL-2014-009958

PATIENT
  Age: 55 Year
  Sex: Female
  Weight: 82 kg

DRUGS (3)
  1. FLONIDAN [Concomitant]
     Active Substance: LORATADINE
     Indication: DERMATITIS CONTACT
     Dosage: 1X1 DOSE
     Route: 048
     Dates: start: 201404
  2. MAGNESIUM [Concomitant]
     Active Substance: MAGNESIUM
     Indication: PRODUCT USED FOR UNKNOWN INDICATION
  3. DEXAVEN [Suspect]
     Active Substance: DEXAMETHASONE
     Indication: DERMATITIS CONTACT
     Dosage: SINGLE DOSE
     Route: 030
     Dates: start: 20140514, end: 20140514

REACTIONS (5)
  - Asthenia [Recovered/Resolved]
  - Headache [Recovered/Resolved]
  - Palpitations [Recovered/Resolved]
  - Blood pressure increased [Recovered/Resolved]
  - Malaise [Recovered/Resolved]

NARRATIVE: CASE EVENT DATE: 20140514
